FAERS Safety Report 20573519 (Version 2)
Quarter: 2022Q1

REPORT INFORMATION
  Report Type: Report from Study
  Country: CA (occurrence: CA)
  Receive Date: 20220309
  Receipt Date: 20220323
  Transmission Date: 20220423
  Serious: Yes (Other)
  Sender: FDA-Public Use
  Company Number: CA-OTSUKA-2021_040640

PATIENT
  Sex: Female

DRUGS (2)
  1. CEDAZURIDINE\DECITABINE [Suspect]
     Active Substance: CEDAZURIDINE\DECITABINE
     Indication: Myelodysplastic syndrome
     Dosage: UNK, 5 PILLS PER CYCLE
     Route: 065
     Dates: start: 20211013
  2. CEDAZURIDINE\DECITABINE [Suspect]
     Active Substance: CEDAZURIDINE\DECITABINE
     Dosage: UNK, 4 PILLS PER CYCLE
     Route: 065

REACTIONS (7)
  - Surgery [Unknown]
  - Muscular weakness [Unknown]
  - Abdominal pain [Unknown]
  - Fatigue [Unknown]
  - Vomiting [Unknown]
  - Dizziness [Unknown]
  - Therapy interrupted [Unknown]
